FAERS Safety Report 12167601 (Version 4)
Quarter: 2017Q1

REPORT INFORMATION
  Report Type: Spontaneous
  Country: DK (occurrence: DK)
  Receive Date: 20160310
  Receipt Date: 20170222
  Transmission Date: 20170428
  Serious: Yes (Death, Other)
  Sender: FDA-Public Use
  Company Number: PHHY2016DK029506

PATIENT
  Age: 65 Year
  Sex: Female
  Weight: 55 kg

DRUGS (2)
  1. XGEVA [Suspect]
     Active Substance: DENOSUMAB
     Indication: METASTASES TO BONE
     Dosage: 120 MG, Q4WK
     Route: 058
     Dates: start: 20140711, end: 20151106
  2. ZOMETA [Suspect]
     Active Substance: ZOLEDRONIC ACID
     Indication: METASTASES TO BONE
     Dosage: 4 MG, Q4WK
     Route: 042
     Dates: start: 20130222, end: 20140711

REACTIONS (4)
  - Death [Fatal]
  - Osteonecrosis of jaw [Not Recovered/Not Resolved]
  - Oral cavity fistula [Unknown]
  - Exposed bone in jaw [Unknown]

NARRATIVE: CASE EVENT DATE: 20151127
